FAERS Safety Report 8324930 (Version 3)
Quarter: 2013Q2

REPORT INFORMATION
  Report Type: Spontaneous
  Country: US (occurrence: US)
  Receive Date: 20120106
  Receipt Date: 20130410
  Transmission Date: 20140414
  Serious: Yes (Hospitalization)
  Sender: FDA-Public Use
  Company Number: US-BAYER-2012-000108

PATIENT
  Age: 17 Year
  Sex: Female

DRUGS (3)
  1. YAZ [Suspect]
     Dosage: UNK
     Dates: start: 2007
  2. CEPHALEXIN [Concomitant]
     Dosage: 500 MG, UNK
  3. SULFAMETHOXAZOLE W/TRIMETHOPRIM [Concomitant]

REACTIONS (7)
  - Cerebrovascular accident [None]
  - Thrombosis [None]
  - Injury [None]
  - Pain [None]
  - Diplopia [None]
  - Amnesia [None]
  - Visual impairment [None]
